FAERS Safety Report 21928580 (Version 1)
Quarter: 2023Q1

REPORT INFORMATION
  Report Type: Spontaneous
  Country: US (occurrence: US)
  Receive Date: 20230130
  Receipt Date: 20230130
  Transmission Date: 20230417
  Serious: No
  Sender: FDA-Public Use
  Company Number: US-drreddys-SPO/USA/23/0159668

PATIENT
  Age: 86 Year
  Sex: Male

DRUGS (21)
  1. LENALIDOMIDE [Suspect]
     Active Substance: LENALIDOMIDE
     Indication: Plasma cell myeloma
     Dosage: TAKE 1 CAPSULE BY MOUTH EVERY DAY FOR 21 DAYS FOLLOWED BY 7 DAYS OFF OF THERAPY FOR A 28 DAY CYCLE
     Route: 048
  2. IRON TAB 325 (65 MG [Concomitant]
     Indication: Product used for unknown indication
  3. DARZALEX FASPRO [Concomitant]
     Active Substance: DARATUMUMAB\HYALURONIDASE-FIHJ
     Indication: Product used for unknown indication
  4. ACYCLOVIR TAB 800MG [Concomitant]
     Indication: Product used for unknown indication
  5. ALLOPURINOL [Concomitant]
     Active Substance: ALLOPURINOL
     Indication: Product used for unknown indication
  6. ATORVASTATIN [Concomitant]
     Active Substance: ATORVASTATIN
     Indication: Product used for unknown indication
  7. BREO ELLIPTA AEP 100-25MC [Concomitant]
     Indication: Product used for unknown indication
     Dosage: 100-25MC
  8. CANDESARTAN TAB 32MG [Concomitant]
     Indication: Product used for unknown indication
  9. CHLORTHALIDONE TAB 25MG [Concomitant]
     Indication: Product used for unknown indication
  10. ELIQUIS [Concomitant]
     Active Substance: APIXABAN
     Indication: Product used for unknown indication
  11. FAMOTIDINE [Concomitant]
     Active Substance: FAMOTIDINE
     Indication: Product used for unknown indication
  12. FAMOTIDINE [Concomitant]
     Active Substance: FAMOTIDINE
  13. FENOFIBRATE [Concomitant]
     Active Substance: FENOFIBRATE
     Indication: Product used for unknown indication
  14. ISOSORBIDE M TB2 30MG [Concomitant]
     Indication: Product used for unknown indication
  15. METOPROLOL SUCCINATE [Concomitant]
     Active Substance: METOPROLOL SUCCINATE
     Indication: Product used for unknown indication
  16. MYRBETRIQ TB2 50MG [Concomitant]
     Indication: Product used for unknown indication
  17. PROAIR HFA AER 108 (90 MC [Concomitant]
     Indication: Product used for unknown indication
     Dosage: 90 MC
  18. PROCHLORPERAZINE TAB 10MG [Concomitant]
     Indication: Product used for unknown indication
  19. REVLIMID [Concomitant]
     Active Substance: LENALIDOMIDE
     Indication: Product used for unknown indication
  20. SERTRALINE H TAB 50MG [Concomitant]
     Indication: Product used for unknown indication
  21. VASCEPA CAP 1GM [Concomitant]
     Indication: Product used for unknown indication

REACTIONS (6)
  - Gait inability [Unknown]
  - Dyspnoea [Unknown]
  - Nausea [Unknown]
  - Depression [Unknown]
  - Asthenia [Unknown]
  - Diarrhoea [Unknown]
